FAERS Safety Report 5482176-0 (Version None)
Quarter: 2007Q4

REPORT INFORMATION
  Report Type: 
  Country: None (occurrence: None)
  Receive Date: 20071005
  Receipt Date: 20070925
  Transmission Date: 20080405
  Serious: Yes (Hospitalization)
  Sender: FDA-Public Use
  Company Number: 07H-008-0313259-00

PATIENT
  Age: 7 Year
  Sex: Female

DRUGS (3)
  1. PRECEDEX [Suspect]
     Dosage: 0.5 MICROGRAM, AS NECESSARY, INTRAVENOUS
     Route: 042
     Dates: start: 20070618, end: 20070621
  2. DEXAMETHASONE TAB [Concomitant]
  3. GENTAMICIN SULFATE [Concomitant]

REACTIONS (2)
  - CONVULSION [None]
  - HEAD INJURY [None]
